FAERS Safety Report 21930519 (Version 6)
Quarter: 2023Q2

REPORT INFORMATION
  Report Type: Spontaneous
  Country: JP (occurrence: JP)
  Receive Date: 20230131
  Receipt Date: 20230414
  Transmission Date: 20230721
  Serious: Yes (Other)
  Sender: FDA-Public Use
  Company Number: JP-ASTELLAS-2023JP001084

PATIENT
  Age: 55 Year
  Sex: Female

DRUGS (7)
  1. PADCEV [Suspect]
     Active Substance: ENFORTUMAB VEDOTIN-EJFV
     Indication: Ureteric cancer
     Dosage: 1.25 MG/KG, 3 TIMES/MONTH
     Route: 041
     Dates: start: 20230110, end: 20230117
  2. PADCEV [Suspect]
     Active Substance: ENFORTUMAB VEDOTIN-EJFV
     Dosage: 1.0 MG/KG, 3 TIMES/MONTH
     Route: 041
     Dates: start: 20230207, end: 20230207
  3. PADCEV [Suspect]
     Active Substance: ENFORTUMAB VEDOTIN-EJFV
     Dosage: 1.0 MG/KG, 3 TIMES/MONTH
     Route: 041
     Dates: start: 20230221, end: 20230314
  4. GEMCITABINE [Suspect]
     Active Substance: GEMCITABINE
     Indication: Ureteric cancer
     Dosage: UNK UNK, UNKNOWN FREQ.4 COURSES
     Route: 065
  5. CISPLATIN [Suspect]
     Active Substance: CISPLATIN
     Indication: Ureteric cancer
     Dosage: UNK UNK, UNKNOWN FREQ.4 COURSES
     Route: 065
  6. BAVENCIO [Concomitant]
     Active Substance: AVELUMAB
     Indication: Ureteric cancer
     Dosage: UNK UNK, UNKNOWN FREQ.
     Route: 065
  7. FILGRASTIM [Concomitant]
     Active Substance: FILGRASTIM
     Indication: Myelosuppression
     Dosage: UNK UNK, UNKNOWN FREQ.
     Route: 065

REACTIONS (4)
  - Myelosuppression [Recovering/Resolving]
  - Myelosuppression [Not Recovered/Not Resolved]
  - Skin disorder [Recovering/Resolving]
  - Taste disorder [Recovering/Resolving]

NARRATIVE: CASE EVENT DATE: 20230124
